FAERS Safety Report 11936574 (Version 1)
Quarter: 2016Q1

REPORT INFORMATION
  Report Type: Spontaneous
  Country: US (occurrence: US)
  Receive Date: 20160121
  Receipt Date: 20160121
  Transmission Date: 20160526
  Serious: Yes (Other)
  Sender: FDA-Public Use
  Company Number: US-PFIZER INC-2016021630

PATIENT
  Age: 58 Year
  Sex: Male

DRUGS (1)
  1. CHLORAMPHENICOL [Suspect]
     Active Substance: CHLORAMPHENICOL
     Indication: INFLAMMATION
     Dosage: 4 G, DAILY
     Route: 048

REACTIONS (2)
  - Delirium [Recovered/Resolved]
  - Encephalopathy [Recovered/Resolved]
